FAERS Safety Report 7048105-3 (Version None)
Quarter: 2010Q4

REPORT INFORMATION
  Report Type: 
  Country: None (occurrence: None)
  Receive Date: 20101015
  Receipt Date: 20101007
  Transmission Date: 20110411
  Serious: Yes (Death, Other)
  Sender: FDA-Public Use
  Company Number: GXKR2010US11409

PATIENT
  Age: 52 Year
  Sex: Male

DRUGS (2)
  1. WARFARIN SODIUM [Suspect]
     Indication: DEEP VEIN THROMBOSIS
  2. ENOXAPARIN SODIUM [Concomitant]

REACTIONS (7)
  - DELIRIUM [None]
  - EMBOLISM ARTERIAL [None]
  - GANGRENE [None]
  - HYPERCOAGULATION [None]
  - OEDEMA PERIPHERAL [None]
  - PAIN IN EXTREMITY [None]
  - RENAL FAILURE ACUTE [None]
